FAERS Safety Report 5121281-5 (Version None)
Quarter: 2006Q4

REPORT INFORMATION
  Report Type: 
  Country: None (occurrence: None)
  Receive Date: 20061002
  Receipt Date: 20060918
  Transmission Date: 20070319
  Serious: Yes (Other)
  Sender: FDA-Public Use
  Company Number: 2006112637

PATIENT
  Sex: Female
  Weight: 53.978 kg

DRUGS (8)
  1. XALATAN [Suspect]
     Indication: GLAUCOMA
     Dosage: 2 DROP (1 DROP, EVERY DAY)
  2. ASPIRIN [Concomitant]
  3. FUROSEMIDE [Concomitant]
  4. GLIPIZIDE [Concomitant]
  5. TOPROL-XL [Concomitant]
  6. COLAZAL (BALSALAZIDE SODIUM) [Concomitant]
  7. ADVIL [Concomitant]
  8. ALL OTHER THERAPEURTIC PRODUCTS [Concomitant]

REACTIONS (3)
  - CATARACT [None]
  - EYE DISCHARGE [None]
  - EYE PRURITUS [None]
